FAERS Safety Report 7002071-5 (Version None)
Quarter: 2010Q3

REPORT INFORMATION
  Report Type: 
  Country: None (occurrence: None)
  Receive Date: 20100920
  Receipt Date: 20070614
  Transmission Date: 20110219
  Serious: Yes (Hospitalization, Other)
  Sender: FDA-Public Use
  Company Number: US-ASTRAZENECA-2006UW12156

PATIENT
  Age: 383 Month
  Sex: Female
  Weight: 74 kg

DRUGS (11)
  1. SEROQUEL [Suspect]
     Indication: DEPRESSION
     Route: 048
     Dates: start: 20020528
  2. SEROQUEL [Suspect]
     Indication: ANXIETY
     Route: 048
     Dates: start: 20020528
  3. SEROQUEL [Suspect]
     Route: 048
     Dates: start: 20030101, end: 20040101
  4. SEROQUEL [Suspect]
     Route: 048
     Dates: start: 20030101, end: 20040101
  5. ABILIFY [Concomitant]
  6. GEODON [Concomitant]
  7. RISPERDAL [Concomitant]
  8. LEXAPRO [Concomitant]
     Dates: start: 20010101
  9. NEURONTIN [Concomitant]
     Dates: start: 20010101
  10. ATIVAN [Concomitant]
     Dates: start: 20010101
  11. PROZAC [Concomitant]
     Route: 048
     Dates: start: 20020107

REACTIONS (4)
  - DIABETES MELLITUS [None]
  - DIABETIC KETOACIDOSIS [None]
  - PANCREATITIS [None]
  - PANCREATITIS ACUTE [None]
